FAERS Safety Report 9530856 (Version 1)
Quarter: 2013Q3

REPORT INFORMATION
  Report Type: Spontaneous
  Country: US (occurrence: None)
  Receive Date: 20130916
  Receipt Date: 20130916
  Transmission Date: 20140515
  Serious: Yes (Hospitalization)
  Sender: FDA-Public Use
  Company Number: None

PATIENT
  Age: 62 Year
  Sex: Male
  Weight: 110.4 kg

DRUGS (1)
  1. CISPLATIN [Suspect]
     Dosage: ACCELERATED IMR, 70 GY FOR 6 WEEKS + HIGH DOSE DDP (100 MG/M2) DAYS 1 AND 22( TOTAL: 200 MG/M2)

REACTIONS (3)
  - Hypophagia [None]
  - Dysphagia [None]
  - Odynophagia [None]
